FAERS Safety Report 5080428-X (Version None)
Quarter: 2006Q3

REPORT INFORMATION
  Report Type: 
  Country: None (occurrence: None)
  Receive Date: 20060815
  Receipt Date: 20060804
  Transmission Date: 20061208
  Serious: Yes (Other)
  Sender: FDA-Public Use
  Company Number: US-SANOFI-SYNTHELABO-A03200605014

PATIENT
  Sex: Male

DRUGS (2)
  1. AMBIEN CR [Suspect]
     Indication: INSOMNIA
     Dosage: UNK
     Route: 048
  2. FLEXERIL [Interacting]
     Indication: MUSCLE SPASMS
     Dosage: UNK
     Route: 048

REACTIONS (4)
  - ABNORMAL BEHAVIOUR [None]
  - AMNESIA [None]
  - DRUG INTERACTION [None]
  - SLEEP WALKING [None]
